FAERS Safety Report 17125378 (Version 2)
Quarter: 2019Q4

REPORT INFORMATION
  Report Type: Report from Study
  Country: IL (occurrence: IL)
  Receive Date: 20191207
  Receipt Date: 20191227
  Transmission Date: 20200122
  Serious: Yes (Hospitalization)
  Sender: FDA-Public Use
  Company Number: IL-IPSEN BIOPHARMACEUTICALS, INC.-2019-22436

PATIENT
  Sex: Female

DRUGS (1)
  1. SOMATULINE [Suspect]
     Active Substance: LANREOTIDE ACETATE
     Indication: NEUROENDOCRINE TUMOUR
     Route: 065
     Dates: start: 20150812

REACTIONS (5)
  - Renal impairment [Unknown]
  - Product dose omission [Unknown]
  - Fall [Unknown]
  - Dialysis related complication [Unknown]
  - Pelvic fracture [Unknown]

NARRATIVE: CASE EVENT DATE: 2019
